FAERS Safety Report 15506418 (Version 1)
Quarter: 2018Q4

REPORT INFORMATION
  Report Type: Report from Study
  Country: PA (occurrence: PA)
  Receive Date: 20181016
  Receipt Date: 20181016
  Transmission Date: 20190205
  Serious: Yes (Other)
  Sender: FDA-Public Use
  Company Number: PHHY2018PA125554

PATIENT
  Age: 83 Year
  Sex: Male

DRUGS (1)
  1. EXFORGE [Suspect]
     Active Substance: AMLODIPINE BESYLATE\VALSARTAN
     Indication: PRODUCT USED FOR UNKNOWN INDICATION
     Dosage: 1 DF (AMLODIPINE 10 MG, VALSARTAN 320 MG), UNK
     Route: 065

REACTIONS (3)
  - Blood pressure abnormal [Unknown]
  - Diabetes mellitus [Unknown]
  - Movement disorder [Unknown]
